FAERS Safety Report 7432283-8 (Version None)
Quarter: 2011Q2

REPORT INFORMATION
  Report Type: 
  Country: None (occurrence: None)
  Receive Date: 20110422
  Receipt Date: 20110418
  Transmission Date: 20111010
  Serious: Yes (Hospitalization, Other)
  Sender: FDA-Public Use
  Company Number: GB-ABBOTT-10P-167-0688166-00

PATIENT
  Sex: Male
  Weight: 106 kg

DRUGS (2)
  1. CELECOXIB [Concomitant]
     Indication: PAIN
     Dosage: 200MG DAILY
     Route: 048
     Dates: start: 20100617
  2. HUMIRA [Suspect]
     Indication: CROHN'S DISEASE
     Route: 058
     Dates: start: 20100622, end: 20101221

REACTIONS (5)
  - PENILE ULCERATION [None]
  - TESTICULAR SWELLING [None]
  - RASH ERYTHEMATOUS [None]
  - TESTICULAR PAIN [None]
  - HERPES SIMPLEX [None]
